FAERS Safety Report 25884175 (Version 3)
Quarter: 2025Q4

REPORT INFORMATION
  Report Type: Spontaneous
  Country: JP (occurrence: JP)
  Receive Date: 20251006
  Receipt Date: 20251219
  Transmission Date: 20260118
  Serious: Yes (Death, Hospitalization)
  Sender: ROCHE
  Company Number: JP-ROCHE-10000403225

PATIENT
  Age: 70 Year
  Sex: Male

DRUGS (7)
  1. ROZLYTREK [Suspect]
     Active Substance: ENTRECTINIB
     Indication: Colon cancer
     Route: 048
  2. CAPECITABINE [Concomitant]
     Active Substance: CAPECITABINE
  3. OXALIPLATIN [Concomitant]
     Active Substance: OXALIPLATIN
  4. CETUXIMAB [Concomitant]
     Active Substance: CETUXIMAB
  5. IRINOTECAN [Concomitant]
     Active Substance: IRINOTECAN
  6. AVASTIN [Concomitant]
     Active Substance: BEVACIZUMAB
  7. TIPIRACIL HYDROCHLORIDE\TRIFLURIDINE [Concomitant]
     Active Substance: TIPIRACIL HYDROCHLORIDE\TRIFLURIDINE

REACTIONS (3)
  - Organising pneumonia [Fatal]
  - Pulmonary tumour thrombotic microangiopathy [Fatal]
  - Pulmonary toxicity [Fatal]
